FAERS Safety Report 7916196-0 (Version None)
Quarter: 2011Q4

REPORT INFORMATION
  Report Type: 
  Country: None (occurrence: None)
  Receive Date: 20111116
  Receipt Date: 20111107
  Transmission Date: 20120403
  Serious: No
  Sender: FDA-Public Use
  Company Number: US-BIOGENIDEC-2011BI001607

PATIENT
  Sex: Female

DRUGS (2)
  1. AVONEX [Concomitant]
     Indication: MULTIPLE SCLEROSIS
     Route: 030
     Dates: start: 19970501
  2. TYSABRI [Suspect]
     Indication: MULTIPLE SCLEROSIS
     Route: 042
     Dates: start: 20080421

REACTIONS (11)
  - OROPHARYNGEAL PAIN [None]
  - VIRAL INFECTION [None]
  - LOWER RESPIRATORY TRACT INFECTION [None]
  - COGNITIVE DISORDER [None]
  - GENERAL SYMPTOM [None]
  - URINARY INCONTINENCE [None]
  - URINARY TRACT INFECTION [None]
  - ORAL HERPES [None]
  - COUGH [None]
  - UPPER-AIRWAY COUGH SYNDROME [None]
  - NEUROGENIC BLADDER [None]
